FAERS Safety Report 4678671-4 (Version None)
Quarter: 2005Q2

REPORT INFORMATION
  Report Type: 
  Country: None (occurrence: None)
  Receive Date: 20050527
  Receipt Date: 20050518
  Transmission Date: 20051028
  Serious: Yes (Hospitalization)
  Sender: FDA-Public Use
  Company Number: 2005077309

PATIENT

DRUGS (2)
  1. DEPO-MEDROL [Suspect]
     Indication: ASTHMA
     Dosage: 40 MG (40 MG, ONCE), INTRAVENOUS
     Route: 042
     Dates: start: 20050512
  2. DEPO-MEDROL [Suspect]
     Indication: PNEUMONIA
     Dosage: 40 MG (40 MG, ONCE), INTRAVENOUS
     Route: 042
     Dates: start: 20050512

REACTIONS (1)
  - WRONG DRUG ADMINISTERED [None]
